FAERS Safety Report 5348094-3 (Version None)
Quarter: 2007Q2

REPORT INFORMATION
  Report Type: 
  Country: None (occurrence: None)
  Receive Date: 20070606
  Receipt Date: 20070529
  Transmission Date: 20071010
  Serious: Yes (Hospitalization)
  Sender: FDA-Public Use
  Company Number: US-AMGEN-US222848

PATIENT
  Sex: Male

DRUGS (5)
  1. ARANESP [Suspect]
     Indication: DIALYSIS
     Dates: start: 20060425, end: 20070502
  2. EPOGEN [Suspect]
     Indication: DIALYSIS
     Route: 058
     Dates: start: 20070501
  3. FOLIC ACID [Concomitant]
  4. OXYCONTIN [Concomitant]
  5. OXYGEN [Concomitant]

REACTIONS (1)
  - HAEMOGLOBIN DECREASED [None]
